FAERS Safety Report 8302910-1 (Version None)
Quarter: 2012Q2

REPORT INFORMATION
  Report Type: 
  Country: None (occurrence: None)
  Receive Date: 20120420
  Receipt Date: 20120413
  Transmission Date: 20120825
  Serious: Yes (Other)
  Sender: FDA-Public Use
  Company Number: US-AMGEN-USASP2011056640

PATIENT
  Age: 22 Month
  Sex: Female

DRUGS (1)
  1. ENBREL [Suspect]
     Indication: JUVENILE ARTHRITIS
     Dosage: 12.5 MG, QWK
     Route: 058
     Dates: start: 20110401

REACTIONS (2)
  - BLOOD ALKALINE PHOSPHATASE INCREASED [None]
  - ONYCHOMYCOSIS [None]
